FAERS Safety Report 20660012 (Version 1)
Quarter: 2022Q1

REPORT INFORMATION
  Report Type: Spontaneous
  Country: US (occurrence: US)
  Receive Date: 20220331
  Receipt Date: 20220331
  Transmission Date: 20220423
  Serious: No
  Sender: FDA-Public Use
  Company Number: US-AMERICAN REGENT INC-2022000584

PATIENT
  Age: 39 Year
  Sex: Female
  Weight: 82.54 kg

DRUGS (11)
  1. DEXFERRUM [Suspect]
     Active Substance: IRON DEXTRAN
     Indication: Iron deficiency anaemia
     Dosage: 500 MILLIGRAM DILUTED IN 500 ML OF NORMAL SALINE
     Route: 042
     Dates: start: 20170201, end: 20170201
  2. DEXFERRUM [Suspect]
     Active Substance: IRON DEXTRAN
     Dosage: 500 MILLIGRAM DILUTED IN 500 ML OF NS
     Route: 042
     Dates: start: 20170209, end: 20170209
  3. DEXFERRUM [Suspect]
     Active Substance: IRON DEXTRAN
     Dosage: 500 MILLIGRAM
     Route: 042
     Dates: start: 20170221, end: 20170221
  4. INJECTAFER [Concomitant]
     Active Substance: FERRIC CARBOXYMALTOSE
     Indication: Product used for unknown indication
     Dosage: UNK UNKNOWN
     Route: 042
  5. VITAMIN D3 [Concomitant]
     Active Substance: CHOLECALCIFEROL
     Indication: Product used for unknown indication
     Dosage: 5000 INTERNATIONAL UNIT, QD
     Route: 048
  6. VITAMIN B12 [Concomitant]
     Active Substance: CYANOCOBALAMIN
     Indication: Product used for unknown indication
     Dosage: 1000 MICROGRAM, QD
     Route: 048
  7. HEMAX [ASCORBIC ACID;BIOTIN;COBALT SULFATE;COPPER SULFATE;CYANOCOBALAM [Concomitant]
     Indication: Product used for unknown indication
     Route: 065
  8. ASCORBIC ACID\IRON [Concomitant]
     Active Substance: ASCORBIC ACID\IRON
     Indication: Product used for unknown indication
     Dosage: 2 TABLETS BY MOUTH, QD
     Route: 048
  9. VITAMIN A [Concomitant]
     Active Substance: VITAMIN A
     Indication: Product used for unknown indication
     Dosage: 1 TABLET , QD
     Route: 048
  10. VITAMINS [Concomitant]
     Active Substance: VITAMINS
     Indication: Product used for unknown indication
     Dosage: 1 CAPSULE BY MOUTH, QD
     Route: 048
  11. ZINC [Concomitant]
     Active Substance: ZINC
     Indication: Product used for unknown indication
     Dosage: 22 MILLIGRAM (1 TABLET QD)
     Route: 048

REACTIONS (1)
  - Throat irritation [Recovered/Resolved]

NARRATIVE: CASE EVENT DATE: 20170201
